FAERS Safety Report 4497431-0 (Version None)
Quarter: 2004Q4

REPORT INFORMATION
  Report Type: 
  Country: None (occurrence: None)
  Receive Date: 20041110
  Receipt Date: 19990924
  Transmission Date: 20050328
  Serious: Yes (Death, Hospitalization)
  Sender: FDA-Public Use
  Company Number: JP-SOLVAY-00399001310

PATIENT
  Age: 8 Year
  Sex: Male

DRUGS (6)
  1. MUCODYNE [Concomitant]
     Indication: CYSTIC FIBROSIS
     Dosage: DAILY DOSE: 12 MILLILITRE(S)
     Route: 048
     Dates: start: 19950620
  2. CREON [Suspect]
     Indication: CYSTIC FIBROSIS
     Dosage: DAILY DOSE: 3 G. FREQUENCY:UNKNOWN
     Route: 048
     Dates: start: 19961111
  3. ENTERONON-R [Concomitant]
     Indication: CYSTIC FIBROSIS
     Dosage: DAILY DOSE: 4 GRAM(S)
     Route: 048
     Dates: start: 19950620
  4. HYMERON K1 [Concomitant]
     Indication: CYSTIC FIBROSIS
     Dosage: DAILY DOSE: .6 GRAM(S)
     Route: 048
     Dates: start: 19950620
  5. ALFAROL [Concomitant]
     Indication: CYSTIC FIBROSIS
     Dosage: DAILY DOSE: 2 DOSAGE FORM
     Route: 048
     Dates: start: 19950620
  6. JUVELA [Concomitant]
     Indication: CYSTIC FIBROSIS
     Dosage: DAILY DOSE: 0.5 GRAM(S)
     Route: 048
     Dates: start: 19950620

REACTIONS (27)
  - ABDOMINAL DISTENSION [None]
  - ANAEMIA [None]
  - APNOEA [None]
  - ASCITES [None]
  - BACK PAIN [None]
  - BRONCHIECTASIS [None]
  - COAGULOPATHY [None]
  - COUGH [None]
  - DRUG INEFFECTIVE [None]
  - GASTRITIS HAEMORRHAGIC [None]
  - GASTROINTESTINAL HAEMORRHAGE [None]
  - HAEMATEMESIS [None]
  - HAEMOGLOBIN DECREASED [None]
  - HEPATIC CIRRHOSIS [None]
  - HEPATIC ENCEPHALOPATHY [None]
  - HEPATIC FAILURE [None]
  - LARGE INTESTINAL ULCER HAEMORRHAGE [None]
  - MELAENA [None]
  - PALLOR [None]
  - PANCYTOPENIA [None]
  - PNEUMONIA [None]
  - PRODUCTIVE COUGH [None]
  - RECTAL HAEMORRHAGE [None]
  - RESPIRATORY FAILURE [None]
  - URINE OUTPUT DECREASED [None]
  - VARICES OESOPHAGEAL [None]
  - VOMITING [None]
